FAERS Safety Report 22346137 (Version 1)
Quarter: 2023Q2

REPORT INFORMATION
  Report Type: Spontaneous
  Country: DE (occurrence: DE)
  Receive Date: 20230519
  Receipt Date: 20230519
  Transmission Date: 20230721
  Serious: Yes (Other)
  Sender: FDA-Public Use
  Company Number: DE-DCGMA-17172877

PATIENT
  Age: 64 Year
  Sex: Female
  Weight: 68 kg

DRUGS (1)
  1. CIPROFLOXACIN [Suspect]
     Active Substance: CIPROFLOXACIN
     Indication: Ear infection
     Dosage: 1000 MILLIGRAM DAILY; DAILY DOSE: 1000 MG MILLIGRAM(S) EVERY DAY
     Route: 065
     Dates: start: 20170208, end: 20170213

REACTIONS (8)
  - Arthralgia [Not Recovered/Not Resolved]
  - Hypoaesthesia [Not Recovered/Not Resolved]
  - Myalgia [Not Recovered/Not Resolved]
  - Pruritus [Not Recovered/Not Resolved]
  - Sleep disorder [Not Recovered/Not Resolved]
  - Tinnitus [Not Recovered/Not Resolved]
  - Visual impairment [Not Recovered/Not Resolved]
  - Fear of death [Not Recovered/Not Resolved]

NARRATIVE: CASE EVENT DATE: 20170213
